FAERS Safety Report 23644834 (Version 1)
Quarter: 2024Q1

REPORT INFORMATION
  Report Type: Spontaneous
  Country: US (occurrence: US)
  Receive Date: 20240318
  Receipt Date: 20240318
  Transmission Date: 20240410
  Serious: No
  Sender: FDA-Public Use
  Company Number: US-INCYTE CORPORATION-2024IN002622

PATIENT

DRUGS (1)
  1. OPZELURA [Suspect]
     Active Substance: RUXOLITINIB PHOSPHATE
     Dosage: 60 GRAM (1% CREAM), BID, APPLY A THIN LAYER TO AFFECTED AREA
     Route: 065
     Dates: start: 202310

REACTIONS (1)
  - Maternal exposure during pregnancy [Unknown]
